FAERS Safety Report 20231962 (Version 1)
Quarter: 2021Q4

REPORT INFORMATION
  Report Type: Spontaneous
  Country: CN (occurrence: CN)
  Receive Date: 20211227
  Receipt Date: 20211227
  Transmission Date: 20220303
  Serious: Yes (Hospitalization, Other)
  Sender: FDA-Public Use
  Company Number: CN-CPL-002682

PATIENT
  Age: 27 Year
  Sex: Female

DRUGS (3)
  1. VENLAFAXINE [Suspect]
     Active Substance: VENLAFAXINE HYDROCHLORIDE
     Indication: Depression
     Dosage: LOW-DOSE VEN 50MG (ORAL, QD). GRADUALLY INCREASED TO 225MG/D ON 19-MAR
     Route: 048
     Dates: start: 20210309
  2. LORAZEPAM [Concomitant]
     Active Substance: LORAZEPAM
     Indication: Dyssomnia
     Dosage: ORAL, QN
     Route: 048
  3. ZOLPIDEM TARTRATE [Concomitant]
     Active Substance: ZOLPIDEM TARTRATE
     Indication: Dyssomnia
     Dosage: 10MG (ORAL, QN)
     Route: 048

REACTIONS (1)
  - Liver injury [Recovered/Resolved]

NARRATIVE: CASE EVENT DATE: 20210401
